FAERS Safety Report 5267407-4 (Version None)
Quarter: 2007Q1

REPORT INFORMATION
  Report Type: 
  Country: None (occurrence: None)
  Receive Date: 20070316
  Receipt Date: 20070306
  Transmission Date: 20070707
  Serious: Yes (Hospitalization)
  Sender: FDA-Public Use
  Company Number: AU-ROCHE-432005

PATIENT
  Age: 63 Year
  Sex: Male
  Weight: 86 kg

DRUGS (6)
  1. CAPECITABINE [Suspect]
     Dosage: FREQUENCY AS PER PROTOCOL: IN TWO DIVIDED DOSES ON DAYS 1-14 EVERY 3 WEEKS
     Route: 048
     Dates: start: 20051206, end: 20061122
  2. BEVACIZUMAB [Suspect]
     Dosage: FREQUENCY AS PER PROTOCOL
     Route: 042
     Dates: start: 20051206, end: 20061122
  3. MITOMYCIN-C BULK POWDER [Suspect]
     Dosage: FREQUENCY AS PER PROTOCOL
     Route: 042
     Dates: start: 20051206, end: 20061122
  4. LASIX [Concomitant]
     Route: 048
     Dates: start: 20051015, end: 20061122
  5. PYRIDOXINE HCL [Concomitant]
     Indication: PROPHYLAXIS
     Route: 048
     Dates: start: 20060104, end: 20060118
  6. MAXOLON [Concomitant]
     Indication: PROPHYLAXIS
     Route: 048
     Dates: start: 20060107, end: 20060118

REACTIONS (1)
  - DEEP VEIN THROMBOSIS [None]
